FAERS Safety Report 6354900-6 (Version None)
Quarter: 2009Q3

REPORT INFORMATION
  Report Type: 
  Country: None (occurrence: None)
  Receive Date: 20090914
  Receipt Date: 20090910
  Transmission Date: 20100115
  Serious: Yes (Other)
  Sender: FDA-Public Use
  Company Number: US-MERCK-0906USA01869

PATIENT
  Age: 77 Year
  Sex: Female

DRUGS (3)
  1. FOSAMAX PLUS D [Suspect]
     Indication: OSTEOPOROSIS
     Route: 048
     Dates: start: 20070316
  2. VERAPAMIL [Concomitant]
     Route: 065
  3. LISINOPRIL [Concomitant]
     Route: 048

REACTIONS (3)
  - ARTHROPATHY [None]
  - JAW DISORDER [None]
  - JOINT CREPITATION [None]
